FAERS Safety Report 6709600-7 (Version None)
Quarter: 2010Q2

REPORT INFORMATION
  Report Type: 
  Country: None (occurrence: None)
  Receive Date: 20100504
  Receipt Date: 20100419
  Transmission Date: 20101027
  Serious: Yes (Hospitalization)
  Sender: FDA-Public Use
  Company Number: GB-ROCHE-697136

PATIENT
  Sex: Female
  Weight: 66.5 kg

DRUGS (13)
  1. PEGINTERFERON ALFA-2A [Suspect]
     Indication: HEPATITIS C
     Route: 058
     Dates: start: 20100119
  2. RIBAVIRIN [Suspect]
     Indication: HEPATITIS C
     Route: 048
     Dates: start: 20100119
  3. BLINDED TMC435 [Suspect]
     Indication: HEPATITIS C
     Route: 048
     Dates: start: 20100119
  4. RAMIPRIL [Concomitant]
     Route: 048
  5. NIFEDIPINE [Concomitant]
     Indication: HYPERTENSION
     Route: 048
  6. PARACETAMOL [Concomitant]
     Indication: HEADACHE
     Route: 048
     Dates: start: 20100119
  7. CHLORHEXIDINE MOUTHWASH [Concomitant]
     Indication: GINGIVITIS
     Route: 048
     Dates: start: 20100208
  8. ZOPICLONE [Concomitant]
     Indication: INSOMNIA
     Route: 048
  9. TRIMETHOPRIM [Concomitant]
     Indication: URINARY TRACT INFECTION
     Route: 048
     Dates: start: 20100318
  10. PARAFFIN [Concomitant]
     Route: 061
     Dates: start: 20100315
  11. OILATUM [Concomitant]
     Dosage: DRUG REPORTED AS OILATUM (PARAFFIN, LIQUID).
     Route: 061
     Dates: start: 20100315
  12. CETRIZINE [Concomitant]
     Dosage: DRUG REPORTED AS CETRIZINE HYDROCHLORIDE
     Route: 048
     Dates: start: 20100315
  13. EPADERM [Concomitant]

REACTIONS (5)
  - ABDOMINAL PAIN [None]
  - NEPHROLITHIASIS [None]
  - PYREXIA [None]
  - URINARY TRACT INFECTION [None]
  - VOMITING [None]
